FAERS Safety Report 4672463-8 (Version None)
Quarter: 2005Q2

REPORT INFORMATION
  Report Type: 
  Country: None (occurrence: None)
  Receive Date: 20050523
  Receipt Date: 20050505
  Transmission Date: 20051028
  Serious: Yes (Hospitalization, Other)
  Sender: FDA-Public Use
  Company Number: DSA_26423_2005

PATIENT
  Age: 23 Year
  Sex: Female

DRUGS (2)
  1. NIFEDIPINE [Suspect]
     Indication: PREMATURE BABY
     Dosage: 10 MG ONCE PO
     Route: 048
  2. NIFEDIPINE [Suspect]
     Indication: PREMATURE BABY
     Dosage: 10 MG  PO
     Route: 048

REACTIONS (8)
  - BRADYCARDIA FOETAL [None]
  - DRUG EXPOSURE DURING PREGNANCY [None]
  - HYPOTENSION [None]
  - INDUCED LABOUR [None]
  - INFARCTION [None]
  - INTRA-UTERINE DEATH [None]
  - PLACENTAL DISORDER [None]
  - UMBILICAL CORD ABNORMALITY [None]
